FAERS Safety Report 8943034 (Version 1)
Quarter: 2012Q4

REPORT INFORMATION
  Report Type: 
  Country: US (occurrence: US)
  Receive Date: 20121204
  Receipt Date: 20121204
  Transmission Date: 20130627
  Serious: Yes (Hospitalization)
  Sender: FDA-Public Use
  Company Number: US-ELI_LILLY_AND_COMPANY-US201211002886

PATIENT
  Sex: Female

DRUGS (1)
  1. FORTEO [Suspect]
     Indication: OSTEOPOROSIS
     Dosage: UNK UNK, qd
     Dates: start: 201210, end: 20121121

REACTIONS (4)
  - Palpitations [Unknown]
  - Chest pain [Unknown]
  - Pain in extremity [Unknown]
  - Blood pressure increased [Unknown]
